FAERS Safety Report 9928812 (Version 2)
Quarter: 2014Q1

REPORT INFORMATION
  Report Type: Spontaneous
  Country: US (occurrence: US)
  Receive Date: 20140227
  Receipt Date: 20140331
  Transmission Date: 20141002
  Serious: No
  Sender: FDA-Public Use
  Company Number: US-TEVA-465048USA

PATIENT
  Age: 25 Year
  Sex: Female
  Weight: 75.82 kg

DRUGS (3)
  1. PARAGARD 380A [Suspect]
     Indication: CONTRACEPTION
     Route: 015
     Dates: start: 20131217, end: 20140220
  2. PARAGARD 380A [Suspect]
     Route: 015
     Dates: start: 20140220
  3. PRENATAL VITAMINS [Concomitant]
     Indication: NUTRITIONAL SUPPLEMENTATION

REACTIONS (5)
  - Device expulsion [Recovered/Resolved]
  - Medical device complication [Recovered/Resolved]
  - Vulvovaginal pain [Unknown]
  - Vaginal haemorrhage [Unknown]
  - Breast feeding [Unknown]
